FAERS Safety Report 10631824 (Version 1)
Quarter: 2014Q4

REPORT INFORMATION
  Report Type: Spontaneous
  Country: US (occurrence: US)
  Receive Date: 20141205
  Receipt Date: 20141205
  Transmission Date: 20150529
  Serious: No
  Sender: FDA-Public Use
  Company Number: US-BRISTOL-MYERS SQUIBB COMPANY-21489596

PATIENT

DRUGS (1)
  1. FORXIGA [Suspect]
     Active Substance: DAPAGLIFLOZIN
     Indication: DIABETES MELLITUS
     Dates: end: 20140926

REACTIONS (22)
  - Pollakiuria [Unknown]
  - Thirst [Unknown]
  - Heart rate increased [Unknown]
  - Skin discolouration [Unknown]
  - Chills [Unknown]
  - Psychomotor hyperactivity [Unknown]
  - Vision blurred [Recovered/Resolved]
  - Eye pruritus [Unknown]
  - Foreign body sensation in eyes [Unknown]
  - Hypoacusis [Unknown]
  - Vertigo [Unknown]
  - Hunger [Unknown]
  - Headache [Unknown]
  - Back pain [Unknown]
  - Hyperhidrosis [Unknown]
  - Dysarthria [Unknown]
  - Dry mouth [Unknown]
  - Pain in extremity [Unknown]
  - Nightmare [Unknown]
  - Tinnitus [Recovered/Resolved]
  - Myalgia [Unknown]
  - Pruritus genital [Recovered/Resolved]
